FAERS Safety Report 5487433-X (Version None)
Quarter: 2007Q4

REPORT INFORMATION
  Report Type: 
  Country: None (occurrence: None)
  Receive Date: 20071015
  Receipt Date: 20071001
  Transmission Date: 20080405
  Serious: Yes (Hospitalization)
  Sender: FDA-Public Use
  Company Number: GXKR2007FR08471

PATIENT
  Age: 54 Year
  Sex: Male

DRUGS (4)
  1. PREDNISONE [Suspect]
     Indication: INTERVERTEBRAL DISC PROTRUSION
     Dosage: 60 MG, QD, ORAL
     Route: 048
  2. LEVODOPA-CARBIDOPA (CARBIDOPA, LEVODOPA) [Concomitant]
  3. PIRIBEDIL (PIRIBEDIL) [Concomitant]
  4. AMANTADINE HCL [Concomitant]

REACTIONS (6)
  - CONFUSIONAL STATE [None]
  - DRUG WITHDRAWAL SYNDROME [None]
  - LACK OF SPONTANEOUS SPEECH [None]
  - NERVOUS SYSTEM DISORDER [None]
  - NUCLEAR MAGNETIC RESONANCE IMAGING BRAIN ABNORMAL [None]
  - SOMNOLENCE [None]
